FAERS Safety Report 13450385 (Version 2)
Quarter: 2017Q2

REPORT INFORMATION
  Report Type: Spontaneous
  Country: GB (occurrence: GB)
  Receive Date: 20170417
  Receipt Date: 20170614
  Transmission Date: 20170830
  Serious: Yes (Death, Hospitalization)
  Sender: FDA-Public Use
  Company Number: GB-MYLANLABS-2017M1022955

PATIENT

DRUGS (1)
  1. CLOZARIL [Suspect]
     Active Substance: CLOZAPINE
     Indication: SCHIZOPHRENIA
     Dosage: UNK
     Route: 048
     Dates: start: 20090320

REACTIONS (3)
  - Neuroendocrine tumour of the lung metastatic [Fatal]
  - Metastases to lymph nodes [Fatal]
  - Metastases to central nervous system [Fatal]
